FAERS Safety Report 4580039-6 (Version None)
Quarter: 2005Q1

REPORT INFORMATION
  Report Type: 
  Country: None (occurrence: None)
  Receive Date: 20050214
  Receipt Date: 19910620
  Transmission Date: 20050727
  Serious: Yes (Death)
  Sender: FDA-Public Use
  Company Number: IT-MERCK-91061163

PATIENT
  Age: 22 Year
  Sex: Female

DRUGS (5)
  1. VINCRISTINE [Concomitant]
     Route: 065
  2. DOXORUBICIN [Concomitant]
     Route: 065
  3. PREDNISOLONE [Concomitant]
     Route: 065
  4. ELSPAR [Suspect]
     Indication: ACUTE LYMPHOCYTIC LEUKAEMIA
     Route: 065
  5. CYCLOPHOSPHAMIDE [Concomitant]
     Route: 065

REACTIONS (7)
  - CEREBRAL THROMBOSIS [None]
  - EMBOLISM [None]
  - HEPATIC INFARCTION [None]
  - HEPATIC VEIN OCCLUSION [None]
  - INTRACARDIAC THROMBUS [None]
  - PULMONARY EMBOLISM [None]
  - SPLENIC INFARCTION [None]
